FAERS Safety Report 6437063-8 (Version None)
Quarter: 2009Q4

REPORT INFORMATION
  Report Type: 
  Country: None (occurrence: None)
  Receive Date: 20091112
  Receipt Date: 20091104
  Transmission Date: 20100525
  Serious: Yes (Other)
  Sender: FDA-Public Use
  Company Number: FR-JNJFOC-20091102243

PATIENT
  Age: 53 Year
  Sex: Female

DRUGS (7)
  1. RISPERDAL [Suspect]
     Route: 065
  2. RISPERDAL [Suspect]
     Indication: BIPOLAR I DISORDER
     Route: 065
  3. ACTONEL [Concomitant]
     Route: 065
  4. DIACEREIN [Concomitant]
     Route: 065
  5. TERCIAN [Concomitant]
     Route: 065
  6. TERCIAN [Concomitant]
     Route: 065
  7. VITAMIN D [Concomitant]
     Route: 065

REACTIONS (2)
  - BLOOD CORTISOL INCREASED [None]
  - CUSHINGOID [None]
